FAERS Safety Report 16010751 (Version 8)
Quarter: 2020Q1

REPORT INFORMATION
  Report Type: Report from Study
  Country: CA (occurrence: CA)
  Receive Date: 20190227
  Receipt Date: 20200309
  Transmission Date: 20200409
  Serious: Yes (Other)
  Sender: FDA-Public Use
  Company Number: CA-ROCHE-2187649

PATIENT
  Age: 35 Year
  Sex: Female
  Weight: 56.75 kg

DRUGS (6)
  1. BENADRYL [Concomitant]
     Active Substance: DIPHENHYDRAMINE HYDROCHLORIDE
     Indication: PREMEDICATION
  2. AVONEX [Concomitant]
     Active Substance: INTERFERON BETA-1A
  3. COPAXONE [Concomitant]
     Active Substance: GLATIRAMER ACETATE
  4. MIRENA [Concomitant]
     Active Substance: LEVONORGESTREL
  5. OCREVUS [Suspect]
     Active Substance: OCRELIZUMAB
     Dosage: SECOND DOSE OF OCRELIZUMAB
     Route: 042
     Dates: start: 20180927
  6. OCREVUS [Suspect]
     Active Substance: OCRELIZUMAB
     Indication: RELAPSING-REMITTING MULTIPLE SCLEROSIS
     Route: 042
     Dates: start: 20180913

REACTIONS (33)
  - Insomnia [Not Recovered/Not Resolved]
  - Eating disorder [Not Recovered/Not Resolved]
  - Visual impairment [Unknown]
  - Abdominal discomfort [Unknown]
  - Malaise [Unknown]
  - Muscle strain [Not Recovered/Not Resolved]
  - Pneumonia [Recovering/Resolving]
  - Multiple sclerosis relapse [Not Recovered/Not Resolved]
  - Headache [Recovering/Resolving]
  - Emotional disorder [Recovered/Resolved]
  - Injection site pain [Unknown]
  - Influenza [Recovering/Resolving]
  - Diarrhoea [Recovered/Resolved]
  - Abdominal pain [Not Recovered/Not Resolved]
  - Anxiety [Recovered/Resolved]
  - Crying [Recovered/Resolved]
  - Decreased appetite [Recovering/Resolving]
  - Cognitive disorder [Unknown]
  - Respiratory tract infection [Not Recovered/Not Resolved]
  - Nausea [Recovered/Resolved]
  - Stress [Recovering/Resolving]
  - Weight decreased [Not Recovered/Not Resolved]
  - Eating disorder [Unknown]
  - Fatigue [Recovered/Resolved]
  - Nasopharyngitis [Recovered/Resolved]
  - Dysphagia [Unknown]
  - Sepsis [Recovering/Resolving]
  - Gastroenteritis viral [Unknown]
  - Infusion related reaction [Unknown]
  - Hot flush [Recovered/Resolved]
  - Depressed mood [Recovering/Resolving]
  - Sinusitis [Recovering/Resolving]
  - Headache [Recovering/Resolving]

NARRATIVE: CASE EVENT DATE: 20180913
